FAERS Safety Report 13368130 (Version 1)
Quarter: 2017Q1

REPORT INFORMATION
  Report Type: Spontaneous
  Country: US (occurrence: US)
  Receive Date: 20170324
  Receipt Date: 20170324
  Transmission Date: 20170429
  Serious: Yes (Other)
  Sender: FDA-Public Use
  Company Number: US-009507513-1703USA009711

PATIENT
  Age: 32 Year
  Sex: Female
  Weight: 66.3 kg

DRUGS (4)
  1. NYSTATIN. [Suspect]
     Active Substance: NYSTATIN
     Indication: OROPHARYNGEAL PAIN
     Dosage: 5 ML, Q6H, PRN
     Route: 048
     Dates: start: 20170221
  2. AMOXIL [Concomitant]
     Active Substance: AMOXICILLIN
     Indication: OROPHARYNGEAL PAIN
     Dosage: 500 MG, UNK
     Route: 048
     Dates: start: 20170221, end: 20170228
  3. HEXADROL [Suspect]
     Active Substance: DEXAMETHASONE
     Indication: OROPHARYNGEAL PAIN
     Dosage: 5 ML, Q6H PRN
     Route: 048
     Dates: start: 20170221
  4. LIDOCAINE. [Suspect]
     Active Substance: LIDOCAINE
     Indication: OROPHARYNGEAL PAIN
     Dosage: 5 ML, Q6H PRN
     Route: 048
     Dates: start: 20170221

REACTIONS (2)
  - Platelet count decreased [Not Recovered/Not Resolved]
  - Drug ineffective for unapproved indication [Unknown]

NARRATIVE: CASE EVENT DATE: 201702
